FAERS Safety Report 6831452 (Version 2)
Quarter: 2013Q1

REPORT INFORMATION
  Report Type: Spontaneous
  Country: US (occurrence: US)
  Receive Date: 20081112
  Receipt Date: 20130320
  Transmission Date: 20140127
  Serious: Yes (Life-Threatening, Other)
  Sender: FDA-Public Use
  Company Number: US-JNJFOC-20080400815

PATIENT
  Age: 56 Year
  Sex: Female
  Weight: 87.1 kg

DRUGS (3)
  1. MOTRIN [Suspect]
     Indication: PRODUCT USED FOR UNKNOWN INDICATION
     Route: 048
  2. LYRICA [Suspect]
     Indication: PAIN
     Route: 048
     Dates: start: 20071129, end: 20071215
  3. LYRICA [Suspect]
     Indication: PAIN
     Route: 048
     Dates: start: 20071114, end: 20071128

REACTIONS (1)
  - Platelet count decreased [Recovering/Resolving]
